FAERS Safety Report 5796888-2 (Version None)
Quarter: 2008Q3

REPORT INFORMATION
  Report Type: 
  Country: None (occurrence: None)
  Receive Date: 20080701
  Receipt Date: 20080617
  Transmission Date: 20090109
  Serious: Yes (Other)
  Sender: FDA-Public Use
  Company Number: US-ELI_LILLY_AND_COMPANY-US200806003852

PATIENT
  Age: 59 Year
  Sex: Female

DRUGS (5)
  1. FORTEO [Suspect]
     Dosage: UNK, UNK
     Dates: start: 20070101
  2. TOPROL-XL [Concomitant]
  3. EVISTA [Concomitant]
  4. PREVACID [Concomitant]
  5. ALISKIREN [Concomitant]
     Dates: start: 20070101

REACTIONS (3)
  - HAEMOGLOBIN DECREASED [None]
  - HIP ARTHROPLASTY [None]
  - SKIN DISCOLOURATION [None]
